FAERS Safety Report 17560979 (Version 2)
Quarter: 2020Q2

REPORT INFORMATION
  Report Type: Spontaneous
  Country: HU (occurrence: HU)
  Receive Date: 20200319
  Receipt Date: 20200408
  Transmission Date: 20200713
  Serious: Yes (Other)
  Sender: FDA-Public Use
  Company Number: HU-PFIZER INC-2020114190

PATIENT
  Age: 71 Year
  Sex: Male

DRUGS (27)
  1. NEBIVOLOL. [Suspect]
     Active Substance: NEBIVOLOL
     Dosage: UNK
     Route: 065
  2. NEO RECORMON [Concomitant]
     Active Substance: ERYTHROPOIETIN
     Dosage: UNK
     Route: 065
  3. ZYLLT [Concomitant]
     Active Substance: CLOPIDOGREL BISULFATE
     Route: 065
  4. CAVINTON [Concomitant]
     Active Substance: VINPOCETINE
     Route: 065
  5. DASATINIB. [Concomitant]
     Active Substance: DASATINIB
     Route: 065
  6. ROSUVASTATIN. [Suspect]
     Active Substance: ROSUVASTATIN
     Dosage: UNK
     Route: 065
  7. SERMION [NICERGOLINE] [Concomitant]
     Route: 065
  8. FRONTIN [Concomitant]
     Active Substance: ALPRAZOLAM
     Route: 065
  9. XANAX [Concomitant]
     Active Substance: ALPRAZOLAM
     Route: 065
  10. GLURENORM [Concomitant]
     Active Substance: GLIQUIDONE
     Route: 065
  11. DOXAZOSIN MESILATE [Suspect]
     Active Substance: DOXAZOSIN MESYLATE
     Dosage: UNK
     Route: 065
  12. GLIVEC [Suspect]
     Active Substance: IMATINIB MESYLATE
     Indication: CHRONIC MYELOID LEUKAEMIA
     Dosage: UNK
     Route: 065
     Dates: start: 200812, end: 201711
  13. LATIBET [Concomitant]
     Dosage: UNK
     Route: 065
     Dates: start: 201711
  14. ZOLSANA [Concomitant]
     Dosage: UNK
     Route: 065
  15. NOOTROPIL [Concomitant]
     Active Substance: PIRACETAM
     Dosage: UNK
     Route: 065
  16. FLEMAC [Concomitant]
     Dosage: UNK
     Route: 065
  17. LITALIR [Concomitant]
     Active Substance: HYDROXYUREA
     Route: 065
  18. NEO FERRO FOLGAMMA [Concomitant]
     Route: 065
  19. ULPRIX [Concomitant]
     Active Substance: PANTOPRAZOLE SODIUM
     Route: 065
  20. DOMPERIDON [DOMPERIDONE] [Concomitant]
     Dosage: UNK
     Route: 065
  21. TRAJENTA [Concomitant]
     Active Substance: LINAGLIPTIN
     Route: 065
  22. NORVASC [Concomitant]
     Active Substance: AMLODIPINE BESYLATE
     Route: 065
  23. DORETA [Concomitant]
     Active Substance: ACETAMINOPHEN\TRAMADOL HYDROCHLORIDE
     Route: 065
  24. FURON [FUROSEMIDE] [Concomitant]
     Active Substance: FUROSEMIDE
     Route: 065
  25. MILURIT [Concomitant]
     Active Substance: ALLOPURINOL
     Route: 065
  26. ROCALTROL [Concomitant]
     Active Substance: CALCITRIOL
     Route: 065
  27. KALDYUM [Concomitant]
     Active Substance: POTASSIUM CHLORIDE
     Route: 065

REACTIONS (23)
  - Coronary artery stenosis [Unknown]
  - Acute coronary syndrome [Unknown]
  - Electrocardiogram ST segment elevation [Unknown]
  - Acute myocardial infarction [Unknown]
  - Ventricular extrasystoles [Unknown]
  - Neutrophil count increased [Unknown]
  - White blood cell count increased [Unknown]
  - Eosinophil count increased [Unknown]
  - Cerebrovascular accident [Unknown]
  - Diabetic nephropathy [Unknown]
  - Lymphocyte count decreased [Unknown]
  - Myocardial ischaemia [Unknown]
  - Ventricular fibrillation [Unknown]
  - Amylase increased [Unknown]
  - Blood lactate dehydrogenase increased [Unknown]
  - Ischaemic stroke [Unknown]
  - Type 2 diabetes mellitus [Unknown]
  - Osteoarthritis [Unknown]
  - Hypertension [Unknown]
  - Anaemia [Unknown]
  - Pulmonary embolism [Unknown]
  - Chronic kidney disease [Unknown]
  - Nephrosclerosis [Unknown]

NARRATIVE: CASE EVENT DATE: 2014
